FAERS Safety Report 18223244 (Version 2)
Quarter: 2020Q4

REPORT INFORMATION
  Report Type: Spontaneous
  Country: US (occurrence: US)
  Receive Date: 20200902
  Receipt Date: 20201217
  Transmission Date: 20210113
  Serious: Yes (Death, Disabling, Other)
  Sender: FDA-Public Use
  Company Number: US-PURDUE-USA-2020-0164142

PATIENT
  Sex: Male

DRUGS (2)
  1. MORPHINE SULFATE ORAL SOLUTION [Suspect]
     Active Substance: MORPHINE SULFATE
     Indication: PRODUCT USED FOR UNKNOWN INDICATION
     Dosage: UNK
     Route: 060
  2. OXYCONTIN [Suspect]
     Active Substance: OXYCODONE HYDROCHLORIDE
     Indication: BACK PAIN
     Dosage: 5 MG, TWICE
     Route: 048
     Dates: start: 2001

REACTIONS (8)
  - Death [Fatal]
  - Unevaluable event [Unknown]
  - Disturbance in attention [Unknown]
  - Disability [Unknown]
  - Weight decreased [Unknown]
  - Dependence [Unknown]
  - Sleep disorder [Unknown]
  - Impaired driving ability [Unknown]

NARRATIVE: CASE EVENT DATE: 20041106
